FAERS Safety Report 6858116-6 (Version None)
Quarter: 2010Q3

REPORT INFORMATION
  Report Type: 
  Country: None (occurrence: None)
  Receive Date: 20100719
  Receipt Date: 20080201
  Transmission Date: 20110219
  Serious: No
  Sender: FDA-Public Use
  Company Number: US-PFIZER INC-2008012177

PATIENT
  Sex: Male
  Weight: 77.272 kg

DRUGS (1)
  1. CHANTIX [Suspect]
     Indication: SMOKING CESSATION THERAPY
     Dates: start: 20080101, end: 20080101

REACTIONS (6)
  - ABNORMAL DREAMS [None]
  - ASTHENIA [None]
  - CONJUNCTIVITIS INFECTIVE [None]
  - NAUSEA [None]
  - URTICARIA [None]
  - VIRAL INFECTION [None]
